FAERS Safety Report 8316452-0 (Version None)
Quarter: 2012Q2

REPORT INFORMATION
  Report Type: 
  Country: None (occurrence: None)
  Receive Date: 20120425
  Receipt Date: 20120425
  Transmission Date: 20120825
  Serious: Yes (Other)
  Sender: FDA-Public Use
  Company Number: None

PATIENT
  Sex: Male
  Weight: 47.6277 kg

DRUGS (1)
  1. ACTONEL [Suspect]
     Indication: OSTEOPOROSIS
     Dosage: 1 TABLET MONTHLY PO
     Route: 048
     Dates: start: 20120408

REACTIONS (3)
  - ABDOMINAL PAIN [None]
  - CRYING [None]
  - ARTHRALGIA [None]
